FAERS Safety Report 15368311 (Version 2)
Quarter: 2019Q2

REPORT INFORMATION
  Report Type: Report from Study
  Country: US (occurrence: US)
  Receive Date: 20180910
  Receipt Date: 20190430
  Transmission Date: 20190711
  Serious: Yes (Hospitalization, Disabling, Other)
  Sender: FDA-Public Use
  Company Number: US-ACTELION-A-US2018-178341

PATIENT
  Age: 56 Year
  Sex: Male

DRUGS (1)
  1. OPSUMIT [Suspect]
     Active Substance: MACITENTAN
     Indication: PULMONARY ARTERIAL HYPERTENSION
     Dosage: UNK
     Route: 048
     Dates: start: 20140625

REACTIONS (3)
  - Cardiovascular insufficiency [Unknown]
  - Hospitalisation [Unknown]
  - Stent placement [Unknown]

NARRATIVE: CASE EVENT DATE: 20190412
